FAERS Safety Report 17467408 (Version 3)
Quarter: 2020Q2

REPORT INFORMATION
  Report Type: Spontaneous
  Country: US (occurrence: US)
  Receive Date: 20200227
  Receipt Date: 20200422
  Transmission Date: 20200713
  Serious: No
  Sender: FDA-Public Use
  Company Number: US-PFIZER INC-2020084596

PATIENT
  Age: 77 Year
  Sex: Female
  Weight: 63.96 kg

DRUGS (5)
  1. VITAMIN D3 [Concomitant]
     Active Substance: CHOLECALCIFEROL
     Indication: BONE DISORDER
     Dosage: 1000 MG, UNK, (TOOK FOR A LONG TIME, BEFORE IT WAS 1000MG, THEN 2000MG, 4000MG, AND NOW THIS)
  2. VITAMIN D3 [Concomitant]
     Active Substance: CHOLECALCIFEROL
     Dosage: 4000 MG, UNK, (TOOK FOR A LONG TIME, BEFORE IT WAS 1000MG, THEN 2000MG, 4000MG, AND NOW THIS.)
  3. VITAMIN D3 [Concomitant]
     Active Substance: CHOLECALCIFEROL
     Dosage: 5000 MG, 1X/DAY, (5000 MG CLEAR CAPSULES, LIKE JELLY, BY MOUTH ONCE DAILY)
     Route: 048
  4. VITAMIN D3 [Concomitant]
     Active Substance: CHOLECALCIFEROL
     Dosage: 2000 MG, UNK, (TOOK FOR A LONG TIME, BEFORE IT WAS 1000MG, THEN 2000MG, 4000MG, AND NOW THIS.)
  5. FLECTOR [Suspect]
     Active Substance: DICLOFENAC EPOLAMINE
     Indication: PAIN IN EXTREMITY
     Dosage: 10 MG, UNK, (CURRENTLY SHE HAS IT ON FOR TWO HOURS)
     Dates: start: 20200225

REACTIONS (3)
  - Therapeutic product effect incomplete [Unknown]
  - Nausea [Not Recovered/Not Resolved]
  - Abdominal discomfort [Unknown]

NARRATIVE: CASE EVENT DATE: 202002
